FAERS Safety Report 25493610 (Version 2)
Quarter: 2025Q4

REPORT INFORMATION
  Report Type: Spontaneous
  Country: US (occurrence: None)
  Receive Date: 20250630
  Receipt Date: 20251212
  Transmission Date: 20260118
  Serious: Yes (Other)
  Sender: ORGANON
  Company Number: US-ORGANON-O2506USA002963

PATIENT
  Age: 24 Year
  Sex: Female
  Weight: 116.11 kg

DRUGS (4)
  1. NEXPLANON [Suspect]
     Active Substance: ETONOGESTREL
     Indication: Amenorrhoea
     Dosage: 1 IMPLANT (68 MILLIGRAM) (LEFT UPPER NON DOMINANT ARM) (EVERY 3 YEARS)
     Dates: start: 20220307, end: 20250626
  2. NEXPLANON [Suspect]
     Active Substance: ETONOGESTREL
     Indication: Contraception
  3. NEXPLANON [Suspect]
     Active Substance: ETONOGESTREL
     Dosage: 1 IMPLANT (LEFT UPPER NON DOMINANT ARM) (EVERY 3 YEARS)
     Dates: start: 20190307, end: 20220307
  4. NEXPLANON [Concomitant]
     Active Substance: ETONOGESTREL
     Dosage: 1 IMPLANT

REACTIONS (13)
  - Seizure [Recovering/Resolving]
  - Loss of consciousness [Recovered/Resolved]
  - Device breakage [Recovered/Resolved]
  - Incorrect product administration duration [Unknown]
  - Product use in unapproved indication [Unknown]
  - Complication of device removal [Recovered/Resolved]
  - Posturing [Unknown]
  - Dyskinesia [Unknown]
  - Pallor [Unknown]
  - Hyperhidrosis [Unknown]
  - Dizziness [Unknown]
  - Device implantation error [Recovered/Resolved]
  - Device implantation error [Recovered/Resolved]

NARRATIVE: CASE EVENT DATE: 20190307
